FAERS Safety Report 8803412 (Version 1)
Quarter: 2012Q4

REPORT INFORMATION
  Report Type: 
  Country: JP (occurrence: JP)
  Receive Date: 20120924
  Receipt Date: 20120924
  Transmission Date: 20130627
  Serious: Yes (Other)
  Sender: FDA-Public Use
  Company Number: JP-JNJFOC-20120904762

PATIENT

DRUGS (1)
  1. DUROTEP [Suspect]
     Indication: PAIN MANAGEMENT
     Route: 062

REACTIONS (9)
  - Delirium [Unknown]
  - Sedation [Unknown]
  - Dyspnoea [Unknown]
  - Restlessness [Unknown]
  - Somnolence [Unknown]
  - Constipation [Unknown]
  - Nausea [Unknown]
  - Vomiting [Unknown]
  - Breakthrough pain [Unknown]
